FAERS Safety Report 6751807-7 (Version None)
Quarter: 2010Q2

REPORT INFORMATION
  Report Type: 
  Country: None (occurrence: None)
  Receive Date: 20100528
  Receipt Date: 20100512
  Transmission Date: 20101027
  Serious: Yes (Other)
  Sender: FDA-Public Use
  Company Number: 1-22613027

PATIENT
  Age: 60 Year
  Sex: Male

DRUGS (6)
  1. MOMETASONE FUROATE [Suspect]
     Indication: ECZEMA
     Dosage: SMALL AMOUNT, INTERMITTENTLY, TOPICAL
     Route: 061
     Dates: start: 20000504, end: 20100421
  2. ALLOPURINOL [Concomitant]
  3. ATENOLOL [Concomitant]
  4. SIMVASTATIN [Concomitant]
  5. LISINOPRIL [Concomitant]
  6. VECTICAL (CALCITRIOL) [Concomitant]

REACTIONS (1)
  - CATARACT [None]
